FAERS Safety Report 24439425 (Version 2)
Quarter: 2025Q1

REPORT INFORMATION
  Report Type: Report from Study
  Country: US (occurrence: US)
  Receive Date: 20241015
  Receipt Date: 20250307
  Transmission Date: 20250408
  Serious: No
  Sender: SUNOVION
  Company Number: US-SUMITOMO PHARMA SWITZERLAND GMBH-2024SPA003365

PATIENT

DRUGS (2)
  1. ORGOVYX [Suspect]
     Active Substance: RELUGOLIX
     Indication: Prostate cancer
     Dosage: 120 MG, QD
     Route: 048
     Dates: start: 20240717
  2. NUBEQA [Concomitant]
     Active Substance: DAROLUTAMIDE
     Route: 065

REACTIONS (8)
  - Oedema [Unknown]
  - Eczema [Unknown]
  - Decreased appetite [Unknown]
  - Blood iron decreased [Unknown]
  - Diarrhoea [Unknown]
  - Weight increased [Unknown]
  - Hypertension [Recovered/Resolved]
  - Incorrect dose administered [Unknown]
